FAERS Safety Report 16607747 (Version 1)
Quarter: 2019Q3

REPORT INFORMATION
  Report Type: Spontaneous
  Country: DE (occurrence: DE)
  Receive Date: 20190722
  Receipt Date: 20190722
  Transmission Date: 20191004
  Serious: Yes (Life-Threatening, Hospitalization)
  Sender: FDA-Public Use
  Company Number: DE-TEVA-2019-DE-1079809

PATIENT
  Age: 70 Year
  Sex: Male

DRUGS (15)
  1. PREDNISOLON [Suspect]
     Active Substance: PREDNISOLONE
     Dosage: 20 MG, DISCONTINUED
     Route: 065
  2. CLOPIDOGREL [Concomitant]
     Active Substance: CLOPIDOGREL BISULFATE
     Dosage: 75 MG, 1-0-0-0
  3. FORMOTEROL [Concomitant]
     Active Substance: FORMOTEROL
     Dosage: 6 MICROGRAM, 1-0-1-0
  4. ASS 100 [Concomitant]
     Active Substance: ASPIRIN
     Dosage: 100 MG, 1-0-0-0
  5. NITRENDIPIN [Concomitant]
     Active Substance: NITRENDIPINE
     Dosage: 10 MG, 0-0-0-1
  6. PANTOPRAZOL [Concomitant]
     Active Substance: PANTOPRAZOLE SODIUM
     Dosage: 40 MG, 1-0-0-0
  7. NEBIVOLOL. [Concomitant]
     Active Substance: NEBIVOLOL
     Dosage: NK MG, 1-0-1-0
  8. NEUROTRAT S FORTE [Concomitant]
     Dosage: 100|100 MG, 1-0-1-0
  9. TORASEMID [Concomitant]
     Active Substance: TORSEMIDE
     Dosage: 10 MG, 1-0.5-0-0
  10. HYDROCHLOROTHIAZID [Concomitant]
     Active Substance: HYDROCHLOROTHIAZIDE
     Dosage: 12.5 MG, 1-0-0-0; INTAKE QUESTIONABLE
  11. QUETIAPINE. [Concomitant]
     Active Substance: QUETIAPINE
     Dosage: 50 MG, 0-0-1-0
  12. REKAWAN [Concomitant]
     Active Substance: POTASSIUM CHLORIDE
     Dosage: NK MG, 1-1-1-0
  13. FELODIPIN [Concomitant]
     Active Substance: FELODIPINE
     Dosage: 5 MG, 1-0-0-0
  14. RAMIPRIL. [Concomitant]
     Active Substance: RAMIPRIL
     Dosage: 2.5 MG, 1-0-1-0
  15. TIOTROPIUM BROMIDE [Concomitant]
     Active Substance: TIOTROPIUM BROMIDE
     Dosage: 18 MICROGRAM, 1-0-0-0

REACTIONS (4)
  - Polyuria [Unknown]
  - Weight decreased [Unknown]
  - Polydipsia [Unknown]
  - Hyperglycaemia [Unknown]
